FAERS Safety Report 9844734 (Version 2)
Quarter: 2014Q1

REPORT INFORMATION
  Report Type: Spontaneous
  Country: JP (occurrence: JP)
  Receive Date: 20140127
  Receipt Date: 20140210
  Transmission Date: 20141002
  Serious: Yes (Hospitalization)
  Sender: FDA-Public Use
  Company Number: JP-SA-2014SA009474

PATIENT
  Age: 41 Year
  Sex: Male
  Weight: 48 kg

DRUGS (1)
  1. CEREZYME [Suspect]
     Indication: GAUCHER^S DISEASE
     Dosage: DOSE : 2800 U DOSE:58.3 UNIT(S)/KILOGRAM BODYWEIGHT
     Route: 042
     Dates: start: 19980313

REACTIONS (1)
  - Pneumonia [Recovered/Resolved]
